FAERS Safety Report 5253744-6 (Version None)
Quarter: 2007Q1

REPORT INFORMATION
  Report Type: 
  Country: None (occurrence: None)
  Receive Date: 20070227
  Receipt Date: 20070213
  Transmission Date: 20070707
  Serious: Yes (Hospitalization)
  Sender: FDA-Public Use
  Company Number: 2007PV030004

PATIENT
  Age: 51 Year
  Sex: Female
  Weight: 102.0593 kg

DRUGS (3)
  1. BYETTA [Suspect]
     Indication: DIABETES MELLITUS NON-INSULIN-DEPENDENT
     Dosage: 10 MCG;BID;SC
     Route: 058
     Dates: start: 20051001
  2. GLUCOPHAGE [Concomitant]
  3. PROPRANOLOL [Concomitant]

REACTIONS (3)
  - BENIGN OVARIAN TUMOUR [None]
  - PHARMACEUTICAL PRODUCT COMPLAINT [None]
  - UTERINE ENLARGEMENT [None]
